FAERS Safety Report 8819736 (Version 1)
Quarter: 2012Q4

REPORT INFORMATION
  Report Type: 
  Country: US (occurrence: US)
  Receive Date: 20121001
  Receipt Date: 20121001
  Transmission Date: 20130627
  Serious: Yes (Other)
  Sender: FDA-Public Use
  Company Number: US-ROCHE-1129867

PATIENT
  Sex: Female

DRUGS (4)
  1. HERCEPTIN [Suspect]
     Indication: BREAST CANCER METASTATIC
     Dosage: loading dose
     Route: 065
  2. HERCEPTIN [Suspect]
     Dosage: maintenance dose
     Route: 065
  3. TAXOL [Concomitant]
  4. COUMADIN [Concomitant]

REACTIONS (2)
  - Skin lesion [Unknown]
  - Carcinoembryonic antigen increased [Unknown]
